FAERS Safety Report 8270696-5 (Version None)
Quarter: 2012Q2

REPORT INFORMATION
  Report Type: 
  Country: None (occurrence: None)
  Receive Date: 20120410
  Receipt Date: 20120329
  Transmission Date: 20120825
  Serious: Yes (Hospitalization)
  Sender: FDA-Public Use
  Company Number: US-ELI_LILLY_AND_COMPANY-US201204001106

PATIENT
  Sex: Male
  Weight: 144.67 kg

DRUGS (17)
  1. EFFIENT [Suspect]
     Indication: ANTIPLATELET THERAPY
     Dosage: UNK, UNKNOWN
     Dates: start: 20120117
  2. SINGULAIR [Concomitant]
     Indication: ASTHMA
     Dosage: UNK
  3. SLO-MAG [Concomitant]
     Indication: OEDEMA PERIPHERAL
     Dosage: UNK
  4. ASPIRIN [Concomitant]
     Indication: PROPHYLAXIS
     Dosage: UNK
  5. ZYRTEC [Concomitant]
     Indication: ASTHMA
     Dosage: UNK
  6. FLEXERIL [Concomitant]
     Indication: ARTHRITIS
     Dosage: UNK
  7. TRICOR [Concomitant]
     Indication: HYPERLIPIDAEMIA
     Dosage: UNK
  8. ZOCOR [Concomitant]
     Indication: HYPERLIPIDAEMIA
     Dosage: UNK
  9. DEXAMETHASONE [Concomitant]
     Indication: GASTROOESOPHAGEAL REFLUX DISEASE
     Dosage: UNK
  10. LISINOPRIL [Concomitant]
     Indication: HYPERTENSION
     Dosage: UNK
  11. ANDROGEL [Concomitant]
     Indication: HYPOGONADISM
     Dosage: UNK
  12. HYDROCHLOROTHIAZIDE [Concomitant]
     Indication: OEDEMA PERIPHERAL
     Dosage: UNK
  13. BYSTOLIC [Concomitant]
     Indication: HYPERTENSION
     Dosage: UNK
  14. ROPINIROLE [Concomitant]
     Indication: RESTLESS LEGS SYNDROME
     Dosage: UNK
  15. BUPROPION HCL [Concomitant]
     Indication: DEPRESSION
     Dosage: UNK
  16. GABAPENTIN [Concomitant]
     Indication: DIABETIC NEUROPATHY
     Dosage: UNK
  17. NOVOLOG [Concomitant]
     Indication: TYPE 2 DIABETES MELLITUS
     Dosage: UNK

REACTIONS (1)
  - DRUG INTERACTION [None]
